FAERS Safety Report 17687380 (Version 2)
Quarter: 2020Q2

REPORT INFORMATION
  Report Type: Spontaneous
  Country: AR (occurrence: AR)
  Receive Date: 20200421
  Receipt Date: 20200514
  Transmission Date: 20200714
  Serious: Yes (Life-Threatening, Other)
  Sender: FDA-Public Use
  Company Number: AR-AMGEN-ARGSP2020063850

PATIENT
  Age: 64 Year
  Sex: Female
  Weight: 60 kg

DRUGS (3)
  1. ENBREL [Suspect]
     Active Substance: ETANERCEPT
     Indication: RHEUMATOID ARTHRITIS
     Dosage: 25 MG, 2X/WEEK
     Route: 065
     Dates: start: 20050310, end: 20200402
  2. FOLIC ACID. [Concomitant]
     Active Substance: FOLIC ACID
     Dosage: UNK
  3. ARTRAIT [METHOTREXATE SODIUM] [Concomitant]
     Dosage: UNK

REACTIONS (9)
  - Inappropriate schedule of product administration [Unknown]
  - Peripheral swelling [Unknown]
  - Anxiety [Unknown]
  - Nervousness [Unknown]
  - Dysstasia [Unknown]
  - Joint range of motion decreased [Unknown]
  - Suicidal ideation [Unknown]
  - Psychotic disorder [Unknown]
  - Muscle rigidity [Unknown]

NARRATIVE: CASE EVENT DATE: 2020
